FAERS Safety Report 8294808-2 (Version None)
Quarter: 2012Q2

REPORT INFORMATION
  Report Type: 
  Country: None (occurrence: None)
  Receive Date: 20120418
  Receipt Date: 20120412
  Transmission Date: 20120825
  Serious: Yes (Hospitalization)
  Sender: FDA-Public Use
  Company Number: US-EISAI INC-E2090-02079-SPO-US

PATIENT
  Age: 59 Year
  Sex: Female

DRUGS (3)
  1. ZONEGRAN [Suspect]
     Route: 048
     Dates: start: 20040101
  2. ZONEGRAN [Suspect]
  3. TIZANIDINE HCL [Concomitant]
     Indication: AMPUTATION STUMP PAIN
     Dates: start: 20080101

REACTIONS (7)
  - THROMBOSIS [None]
  - BLOOD DISORDER [None]
  - CYSTITIS [None]
  - SEPSIS [None]
  - OSTEOPENIA [None]
  - PARATHYROID DISORDER [None]
  - CARDIAC DISORDER [None]
